FAERS Safety Report 9935446 (Version 2)
Quarter: 2014Q1

REPORT INFORMATION
  Report Type: Spontaneous
  Country: US (occurrence: US)
  Receive Date: 20140228
  Receipt Date: 20140228
  Transmission Date: 20141002
  Serious: No
  Sender: FDA-Public Use
  Company Number: US-PFIZER INC-2013206679

PATIENT
  Sex: Female

DRUGS (3)
  1. CYTOMEL [Suspect]
     Dosage: UNK
  2. SYNTHROID [Suspect]
     Dosage: UNK
  3. ARMOUR THYROID [Suspect]
     Dosage: UNK

REACTIONS (5)
  - Drug hypersensitivity [Unknown]
  - Malaise [Unknown]
  - Fatigue [Unknown]
  - Headache [Unknown]
  - Rash [Unknown]
